FAERS Safety Report 19156407 (Version 1)
Quarter: 2021Q2

REPORT INFORMATION
  Report Type: Report from Study
  Country: US (occurrence: US)
  Receive Date: 20210420
  Receipt Date: 20210420
  Transmission Date: 20210717
  Serious: No
  Sender: FDA-Public Use
  Company Number: US-TOLMAR, INC.-21US025827

PATIENT
  Sex: Male

DRUGS (5)
  1. XTANDI [Suspect]
     Active Substance: ENZALUTAMIDE
     Indication: LUNG NEOPLASM MALIGNANT
  2. LUPRON [Suspect]
     Active Substance: LEUPROLIDE ACETATE
     Indication: LUNG NEOPLASM MALIGNANT
     Route: 065
  3. FLOMAX [Concomitant]
     Active Substance: TAMSULOSIN HYDROCHLORIDE
     Indication: PRODUCT USED FOR UNKNOWN INDICATION
     Route: 065
  4. ELIGARD [Suspect]
     Active Substance: LEUPROLIDE ACETATE
     Indication: LUNG NEOPLASM MALIGNANT
     Dosage: UNK
     Route: 065
     Dates: start: 2020
  5. XTANDI [Suspect]
     Active Substance: ENZALUTAMIDE
     Indication: SALIVARY GLAND NEOPLASM
     Dosage: 160 MG, QD
     Route: 048
     Dates: start: 2020

REACTIONS (5)
  - Hot flush [Unknown]
  - Drug ineffective for unapproved indication [Unknown]
  - Constipation [Unknown]
  - Gynaecomastia [Unknown]
  - Insomnia [Unknown]
